FAERS Safety Report 6525605-3 (Version None)
Quarter: 2010Q1

REPORT INFORMATION
  Report Type: 
  Country: None (occurrence: None)
  Receive Date: 20100104
  Receipt Date: 20091222
  Transmission Date: 20100710
  Serious: Yes (Life-Threatening, Hospitalization, Other)
  Sender: FDA-Public Use
  Company Number: RU-ROCHE-676001

PATIENT
  Sex: Female

DRUGS (2)
  1. ROACCUTANE [Suspect]
     Route: 048
     Dates: start: 20090915, end: 20091215
  2. DROSPIRENONE AND EHTINYL ESTRADIOL [Concomitant]
     Dosage: DOSE: 3 MG + 20 'MGKG', FREQUENCY: DAILY, DRUG NAME: 'DROSPIRENONE+ETNINYLESTRADIO/JESL'.
     Route: 048
     Dates: start: 20090901, end: 20091201

REACTIONS (9)
  - ASTHENIA [None]
  - CONFUSIONAL STATE [None]
  - GLYCOSURIA [None]
  - HEADACHE [None]
  - NAUSEA [None]
  - RENAL FAILURE ACUTE [None]
  - RENAL TUBULAR DISORDER [None]
  - TUBULOINTERSTITIAL NEPHRITIS [None]
  - VOMITING [None]
